FAERS Safety Report 4777546-X (Version None)
Quarter: 2005Q3

REPORT INFORMATION
  Report Type: 
  Country: None (occurrence: None)
  Receive Date: 20050921
  Receipt Date: 20050914
  Transmission Date: 20060218
  Serious: Yes (Other)
  Sender: FDA-Public Use
  Company Number: 2005106074

PATIENT
  Sex: Female

DRUGS (1)
  1. PROVERA [Suspect]
     Indication: ILL-DEFINED DISORDER
     Dosage: ORAL
     Route: 048

REACTIONS (3)
  - DETACHMENT OF RETINAL PIGMENT EPITHELIUM [None]
  - MACULAR DEGENERATION [None]
  - VISUAL DISTURBANCE [None]
